FAERS Safety Report 7265383-6 (Version None)
Quarter: 2011Q1

REPORT INFORMATION
  Report Type: 
  Country: None (occurrence: None)
  Receive Date: 20110131
  Receipt Date: 20110127
  Transmission Date: 20110831
  Serious: Yes (Other)
  Sender: FDA-Public Use
  Company Number: US-GILEAD-2011-0035678

PATIENT
  Sex: Male

DRUGS (8)
  1. TOPROL-XL [Concomitant]
  2. NAMENDA [Concomitant]
  3. COUMADIN [Concomitant]
  4. RANEXA [Suspect]
     Indication: ANGINA PECTORIS
     Route: 048
     Dates: start: 20100901, end: 20110119
  5. CRESTOR [Concomitant]
  6. ZETIA [Concomitant]
  7. EFFEXOR [Concomitant]
  8. SINEMET [Concomitant]

REACTIONS (2)
  - OEDEMA [None]
  - DERMATITIS BULLOUS [None]
